FAERS Safety Report 17771596 (Version 5)
Quarter: 2022Q2

REPORT INFORMATION
  Report Type: Other
  Country: US (occurrence: None)
  Receive Date: 20200512
  Receipt Date: 20220428
  Transmission Date: 20220721
  Serious: Yes (Hospitalization, Other)
  Sender: FDA-Public Use
  Company Number: US-ROCHE-2491154

PATIENT
  Age: 51 Year
  Sex: Female
  Weight: 52.210 kg

DRUGS (15)
  1. OCREVUS [Suspect]
     Active Substance: OCRELIZUMAB
     Indication: Secondary progressive multiple sclerosis
     Dosage: ON 11/APR/2020, SHE RECEIVED OCRELIZUMAB INFUSION.
     Route: 041
     Dates: start: 20181115
  2. OCREVUS [Suspect]
     Active Substance: OCRELIZUMAB
     Indication: Relapsing-remitting multiple sclerosis
     Dosage: (PRESCRIBED AS 300 MG ON DAY 1 AND DAY 15 AND 600 MG ONCE IN 6 MONTHS )
     Route: 041
     Dates: start: 201904
  3. ACETAMINOPHEN\HYDROCODONE [Concomitant]
     Active Substance: ACETAMINOPHEN\HYDROCODONE
     Indication: Pain
     Dosage: 10MG HYDROCODONE, 325MG ACETAMINOPHEN, PRN ;ONGOING: YES
     Route: 048
  4. AMPYRA [Concomitant]
     Active Substance: DALFAMPRIDINE
     Dosage: YES
     Route: 048
  5. BENTYL [Concomitant]
     Active Substance: DICYCLOMINE HYDROCHLORIDE
     Dosage: YES
     Route: 048
  6. PROZAC [Concomitant]
     Active Substance: FLUOXETINE HYDROCHLORIDE
     Indication: Depression
     Dosage: YES
     Route: 048
  7. CARAFATE [Concomitant]
     Active Substance: SUCRALFATE
     Route: 048
  8. PROTONIX [Concomitant]
     Active Substance: PANTOPRAZOLE SODIUM
     Indication: Peptic ulcer
     Dosage: YES
     Route: 048
  9. ATIVAN [Concomitant]
     Active Substance: LORAZEPAM
     Indication: Muscle spasms
     Dosage: YES
     Route: 048
  10. ADDERALL [Concomitant]
     Active Substance: AMPHETAMINE ASPARTATE\AMPHETAMINE SULFATE\DEXTROAMPHETAMINE SACCHARATE\DEXTROAMPHETAMINE SULFATE
     Indication: Attention deficit hyperactivity disorder
     Dosage: YES
     Route: 048
  11. ADDERALL [Concomitant]
     Active Substance: AMPHETAMINE ASPARTATE\AMPHETAMINE SULFATE\DEXTROAMPHETAMINE SACCHARATE\DEXTROAMPHETAMINE SULFATE
     Dosage: YES
     Route: 048
  12. ZOFRAN [Concomitant]
     Active Substance: ONDANSETRON HYDROCHLORIDE
     Indication: Nausea
     Dosage: PRN EVERY 8 HOURS ;ONGOING: YES
     Route: 048
  13. PHENERGAN [Concomitant]
     Active Substance: PROMETHAZINE HYDROCHLORIDE
     Indication: Nausea
     Dosage: PRN EVERY 6 HOURS ;ONGOING: YES
     Route: 048
  14. SOLU-MEDROL [Concomitant]
     Active Substance: METHYLPREDNISOLONE SODIUM SUCCINATE
  15. CANNABIS SATIVA SUBSP. INDICA TOP [Concomitant]
     Active Substance: CANNABIS SATIVA SUBSP. INDICA TOP
     Indication: Pain

REACTIONS (21)
  - Nephropathy [Not Recovered/Not Resolved]
  - Infusion related reaction [Recovered/Resolved]
  - Condition aggravated [Recovered/Resolved]
  - Muscle spasms [Not Recovered/Not Resolved]
  - Visual field defect [Not Recovered/Not Resolved]
  - Nausea [Not Recovered/Not Resolved]
  - Visual impairment [Not Recovered/Not Resolved]
  - Insomnia [Recovered/Resolved]
  - Abdominal pain [Not Recovered/Not Resolved]
  - Dental caries [Recovered/Resolved]
  - Memory impairment [Not Recovered/Not Resolved]
  - Candida infection [Not Recovered/Not Resolved]
  - Neuropathy peripheral [Not Recovered/Not Resolved]
  - Infection [Recovered/Resolved]
  - Cerebral atrophy [Recovered/Resolved]
  - Dementia [Not Recovered/Not Resolved]
  - Muscular weakness [Not Recovered/Not Resolved]
  - Fatigue [Not Recovered/Not Resolved]
  - Bipolar disorder [Not Recovered/Not Resolved]
  - Genital herpes [Recovered/Resolved]
  - Memory impairment [Unknown]

NARRATIVE: CASE EVENT DATE: 20181115
